FAERS Safety Report 9611319 (Version 3)
Quarter: 2013Q4

REPORT INFORMATION
  Report Type: Spontaneous
  Country: JP (occurrence: JP)
  Receive Date: 20131010
  Receipt Date: 20131206
  Transmission Date: 20140711
  Serious: Yes (Hospitalization, Disabling)
  Sender: FDA-Public Use
  Company Number: JP-ASTRAZENECA-2013SE73755

PATIENT
  Age: 27822 Day
  Sex: Male
  Weight: 67 kg

DRUGS (3)
  1. ZOLADEX [Suspect]
     Indication: PROSTATE CANCER
     Route: 058
     Dates: start: 20130719, end: 20130920
  2. CASODEX [Suspect]
     Indication: PROSTATE CANCER
     Route: 048
     Dates: start: 20130711, end: 20130929
  3. EQUA [Concomitant]
     Indication: DIABETES MELLITUS
     Route: 048

REACTIONS (3)
  - Interstitial lung disease [Recovering/Resolving]
  - Sleep disorder due to general medical condition, insomnia type [Unknown]
  - Anxiety disorder due to a general medical condition [Unknown]
